FAERS Safety Report 8966019 (Version 2)
Quarter: 2013Q2

REPORT INFORMATION
  Report Type: Spontaneous
  Country: US (occurrence: US)
  Receive Date: 20121217
  Receipt Date: 20130414
  Transmission Date: 20140414
  Serious: Yes (Hospitalization)
  Sender: FDA-Public Use
  Company Number: US-BRISTOL-MYERS SQUIBB COMPANY-17185539

PATIENT
  Age: 51 Year
  Sex: Male

DRUGS (2)
  1. COUMADIN [Suspect]
     Indication: MITRAL VALVE REPLACEMENT
     Route: 048
     Dates: start: 2010
  2. DILANTIN [Interacting]
     Indication: CONVULSION

REACTIONS (4)
  - Gastrointestinal haemorrhage [Unknown]
  - International normalised ratio increased [Unknown]
  - Local swelling [Unknown]
  - Drug interaction [Unknown]
